FAERS Safety Report 8190639-2 (Version None)
Quarter: 2012Q1

REPORT INFORMATION
  Report Type: 
  Country: None (occurrence: None)
  Receive Date: 20120307
  Receipt Date: 20120229
  Transmission Date: 20120608
  Serious: Yes (Hospitalization, Other)
  Sender: FDA-Public Use
  Company Number: US-ACTELION-A-US2011-50411

PATIENT

DRUGS (6)
  1. CALCIUM CHANNEL BLOCKERS [Concomitant]
  2. TRACLEER [Suspect]
     Route: 048
  3. TASIGNA [Suspect]
  4. COUMADIN [Concomitant]
  5. TRACLEER [Suspect]
     Indication: PULMONARY ARTERIAL HYPERTENSION
     Dosage: UNK
     Route: 048
     Dates: start: 20090629
  6. REVATIO [Concomitant]

REACTIONS (14)
  - LUNG ABSCESS [None]
  - MUSCULOSKELETAL CHEST PAIN [None]
  - HAEMOPTYSIS [None]
  - LUNG INFECTION [None]
  - BIOPSY LUNG [None]
  - COUGH [None]
  - DYSPNOEA [None]
  - OXYGEN CONSUMPTION [None]
  - TREMOR [None]
  - SPEECH DISORDER [None]
  - NEOPLASM MALIGNANT [None]
  - LUNG NEOPLASM [None]
  - DEPRESSION [None]
  - RESPIRATORY TRACT CONGESTION [None]
